FAERS Safety Report 24301983 (Version 2)
Quarter: 2024Q3

REPORT INFORMATION
  Report Type: Report from Study
  Country: EG (occurrence: EG)
  Receive Date: 20240910
  Receipt Date: 20240916
  Transmission Date: 20241017
  Serious: Yes (Other)
  Sender: BOEHRINGER INGELHEIM
  Company Number: EG-BoehringerIngelheim-2024-BI-050406

PATIENT
  Age: 28 Year
  Sex: Male
  Weight: 150 kg

DRUGS (1)
  1. OFEV [Suspect]
     Active Substance: NINTEDANIB
     Indication: Pulmonary fibrosis
     Route: 048
     Dates: start: 20240302

REACTIONS (3)
  - Hepatic enzyme increased [Not Recovered/Not Resolved]
  - Chromaturia [Recovered/Resolved]
  - C-reactive protein increased [Not Recovered/Not Resolved]

NARRATIVE: CASE EVENT DATE: 20240501
